FAERS Safety Report 7145542-3 (Version None)
Quarter: 2010Q4

REPORT INFORMATION
  Report Type: 
  Country: None (occurrence: None)
  Receive Date: 20101123
  Receipt Date: 20101101
  Transmission Date: 20110411
  Serious: Yes (Disabling)
  Sender: FDA-Public Use
  Company Number: 2010SP058157

PATIENT
  Age: 29 Year
  Sex: Female
  Weight: 79.3795 kg

DRUGS (1)
  1. IMPLANON [Suspect]
     Indication: CONTRACEPTION
     Dates: start: 20101015

REACTIONS (3)
  - CARPAL TUNNEL SYNDROME [None]
  - IMPLANT SITE HAEMATOMA [None]
  - OEDEMA PERIPHERAL [None]
